FAERS Safety Report 21394259 (Version 1)
Quarter: 2022Q3

REPORT INFORMATION
  Report Type: Spontaneous
  Country: US (occurrence: US)
  Receive Date: 20220930
  Receipt Date: 20220930
  Transmission Date: 20221027
  Serious: No
  Sender: FDA-Public Use
  Company Number: US-BIOVITRUM-2022US09059

PATIENT
  Age: 44 Year
  Sex: Female

DRUGS (2)
  1. KINERET [Suspect]
     Active Substance: ANAKINRA
     Indication: Fibromyalgia
     Dates: start: 202206
  2. KINERET [Suspect]
     Active Substance: ANAKINRA
     Dates: start: 20220701

REACTIONS (5)
  - Fibromyalgia [Unknown]
  - Condition aggravated [Unknown]
  - Fatigue [Unknown]
  - Somnolence [Unknown]
  - Off label use [Unknown]

NARRATIVE: CASE EVENT DATE: 20220601
